FAERS Safety Report 6409327-5 (Version None)
Quarter: 2009Q4

REPORT INFORMATION
  Report Type: 
  Country: None (occurrence: None)
  Receive Date: 20091019
  Receipt Date: 20091019
  Transmission Date: 20100525
  Serious: No
  Sender: FDA-Public Use
  Company Number: None

PATIENT
  Sex: Female
  Weight: 3.77 kg

DRUGS (2)
  1. GENTAK [Suspect]
     Indication: OPHTHALMIA NEONATORUM
     Dosage: 0.5-1CM ONCE  CONJUCTIVAL SAC BOTH EYES
     Dates: start: 20091006
  2. GENTAK [Suspect]
     Indication: PROPHYLAXIS
     Dosage: 0.5-1CM ONCE  CONJUCTIVAL SAC BOTH EYES
     Dates: start: 20091006

REACTIONS (5)
  - APPLICATION SITE ERYTHEMA [None]
  - APPLICATION SITE REACTION [None]
  - APPLICATION SITE SWELLING [None]
  - APPLICATION SITE VESICLES [None]
  - EYELID MARGIN CRUSTING [None]
